FAERS Safety Report 11441100 (Version 2)
Quarter: 2016Q2

REPORT INFORMATION
  Report Type: Spontaneous
  Country: SE (occurrence: SE)
  Receive Date: 20150901
  Receipt Date: 20160629
  Transmission Date: 20160815
  Serious: Yes (Other)
  Sender: FDA-Public Use
  Company Number: SE-ACTAVIS-2015-18051

PATIENT
  Sex: Female

DRUGS (1)
  1. SERTRALINE [Suspect]
     Active Substance: SERTRALINE HYDROCHLORIDE
     Indication: DEPRESSION
     Dosage: UNK
     Route: 065

REACTIONS (1)
  - Interstitial lung disease [Unknown]

NARRATIVE: CASE EVENT DATE: 2013
